FAERS Safety Report 4875649-2 (Version None)
Quarter: 2005Q4

REPORT INFORMATION
  Report Type: 
  Country: None (occurrence: None)
  Receive Date: 20051223
  Receipt Date: 20050914
  Transmission Date: 20060501
  Serious: No
  Sender: FDA-Public Use
  Company Number: 05P-163-0309146-00

PATIENT
  Age: 74 Year
  Sex: Female
  Weight: 60.782 kg

DRUGS (10)
  1. HUMIRA [Suspect]
     Indication: RHEUMATOID ARTHRITIS
     Dosage: 40 MG, 1 IN 2 WK, SUBCUTANEOUS
     Route: 058
     Dates: start: 20040214, end: 20041021
  2. HUMIRA [Suspect]
     Indication: RHEUMATOID ARTHRITIS
     Dosage: 40 MG, 1 IN 2 WK, SUBCUTANEOUS
     Route: 058
     Dates: start: 20041108, end: 20050214
  3. AMLODIPINE BESYLATE [Concomitant]
  4. POTASSIUM CHLORIDE [Concomitant]
  5. PANTOPRAZOLE [Concomitant]
  6. ATENOLOL [Concomitant]
  7. LISINOPRIL [Concomitant]
  8. CLONIDINE [Concomitant]
  9. CALCIUM WITH VITAMIN D [Concomitant]
  10. DIPHENHYDRAMINE HCL [Concomitant]

REACTIONS (2)
  - MUSCLE SPASMS [None]
  - TUBERCULOSIS [None]
